FAERS Safety Report 4970663-0 (Version None)
Quarter: 2006Q2

REPORT INFORMATION
  Report Type: 
  Country: None (occurrence: None)
  Receive Date: 20060412
  Receipt Date: 20050930
  Transmission Date: 20061013
  Serious: Yes (Death)
  Sender: FDA-Public Use
  Company Number: US-MERCK-0510USA01349

PATIENT
  Age: 56 Year
  Sex: Male
  Weight: 105 kg

DRUGS (2)
  1. VIOXX [Suspect]
     Indication: TENDONITIS
     Route: 048
     Dates: start: 20040121, end: 20040307
  2. VIOXX [Suspect]
     Route: 048
     Dates: start: 20040308

REACTIONS (2)
  - CARDIOMYOPATHY [None]
  - HAEMORRHOIDS [None]
